FAERS Safety Report 9893717 (Version 2)
Quarter: 2014Q1

REPORT INFORMATION
  Report Type: Spontaneous
  Country: DE (occurrence: DE)
  Receive Date: 20140213
  Receipt Date: 20140213
  Transmission Date: 20141002
  Serious: Yes (Death)
  Sender: FDA-Public Use
  Company Number: PHHY2014DE009526

PATIENT
  Age: 76 Year
  Sex: Male
  Weight: 76 kg

DRUGS (11)
  1. ULTIBRO BREEZHALER [Suspect]
     Indication: CHRONIC OBSTRUCTIVE PULMONARY DISEASE
     Dosage: 1 DF, QD
     Route: 055
     Dates: start: 20140118
  2. ASS [Concomitant]
     Indication: THROMBOSIS PROPHYLAXIS
     Dosage: 0.5 DF, QD
  3. PREDNISOLONE [Concomitant]
     Dosage: 5 MG, UNK
  4. CARVEDIOL [Concomitant]
     Dosage: 0.5 DF, QD
  5. DIGITOXIN [Concomitant]
     Dosage: 1 DF, QD
  6. EXFORGE [Concomitant]
     Dosage: 0.5 DF, QD
  7. MEMANTINE [Concomitant]
     Indication: DEMENTIA
     Dosage: 1 DF, QD
  8. PANTOZOL [Concomitant]
     Dosage: UNK
  9. BLOOD TRANSFUSION, AUXILIARY PRODUCTS [Concomitant]
     Indication: ANAEMIA
     Dosage: UNK
     Dates: start: 201401
  10. LANTUS [Concomitant]
  11. ACTRAPID//INSULIN HUMAN [Concomitant]

REACTIONS (5)
  - Pulmonary embolism [Fatal]
  - Hypoxia [Fatal]
  - Choking [Fatal]
  - Dyspnoea [Fatal]
  - Circulatory collapse [Fatal]
